FAERS Safety Report 6439263-X (Version None)
Quarter: 2009Q4

REPORT INFORMATION
  Report Type: 
  Country: None (occurrence: None)
  Receive Date: 20091113
  Receipt Date: 20091103
  Transmission Date: 20100525
  Serious: Yes (Hospitalization)
  Sender: FDA-Public Use
  Company Number: PH-NOVOPROD-300378

PATIENT
  Sex: Female

DRUGS (2)
  1. NOVOMIX 30 FLEXPEN [Suspect]
     Indication: DIABETES MELLITUS
     Dosage: 12 IU, QD
     Route: 058
     Dates: start: 20091001, end: 20091026
  2. NOVOMIX 30 FLEXPEN [Suspect]
     Dosage: 12 IU, QD
     Route: 058
     Dates: start: 20091029, end: 20091030

REACTIONS (6)
  - ABDOMINAL PAIN UPPER [None]
  - DIARRHOEA [None]
  - EXOPHTHALMOS [None]
  - PYREXIA [None]
  - RASH [None]
  - SWELLING FACE [None]
